FAERS Safety Report 9364854 (Version 1)
Quarter: 2013Q2

REPORT INFORMATION
  Report Type: Spontaneous
  Country: CA (occurrence: CA)
  Receive Date: 20130624
  Receipt Date: 20130624
  Transmission Date: 20140414
  Serious: Yes (Hospitalization)
  Sender: FDA-Public Use
  Company Number: CA-GLAXOSMITHKLINE-A1018621A

PATIENT
  Sex: Female

DRUGS (10)
  1. TYKERB [Suspect]
     Indication: BREAST CANCER METASTATIC
     Dosage: 1250MG PER DAY
     Route: 048
     Dates: start: 20130304
  2. XELODA [Suspect]
     Indication: PRODUCT USED FOR UNKNOWN INDICATION
     Route: 065
     Dates: end: 20130508
  3. CORTEF [Concomitant]
  4. OROXINE [Concomitant]
  5. SUPEUDOL [Concomitant]
  6. TYLENOL [Concomitant]
  7. PANTOPRAZOLE [Concomitant]
  8. OXAZEPAM [Concomitant]
  9. IMODIUM [Concomitant]
  10. INNOHEP [Concomitant]

REACTIONS (13)
  - Pain in extremity [Not Recovered/Not Resolved]
  - Skin fissures [Unknown]
  - Chapped lips [Unknown]
  - Lip pain [Unknown]
  - Diarrhoea [Unknown]
  - Asthenia [Unknown]
  - Nausea [Unknown]
  - Vomiting [Unknown]
  - Fatigue [Unknown]
  - Dyspnoea [Unknown]
  - Phlebitis [Unknown]
  - Constipation [Unknown]
  - Breast cancer metastatic [Unknown]
